FAERS Safety Report 8310281 (Version 7)
Quarter: 2013Q1

REPORT INFORMATION
  Report Type: Report from Study
  Country: PL (occurrence: PL)
  Receive Date: 20111223
  Receipt Date: 20130104
  Transmission Date: 20140127
  Serious: Yes (Death, Life-Threatening, Hospitalization, Disabling, Other)
  Sender: FDA-Public Use
  Company Number: PL-JNJFOC-20111209525

PATIENT
  Age: 67 Year
  Sex: Male
  Weight: 75 kg

DRUGS (3)
  1. ABIRATERONE ACETATE [Suspect]
     Route: 048
  2. ABIRATERONE ACETATE [Suspect]
     Indication: PROSTATE CANCER METASTATIC
     Route: 048
     Dates: start: 20110629, end: 20111205
  3. PREDNISONE [Suspect]
     Indication: PROSTATE CANCER METASTATIC
     Route: 048
     Dates: start: 20110629, end: 20111205

REACTIONS (4)
  - Dehydration [Fatal]
  - Decreased appetite [Fatal]
  - Urethral stenosis [Recovered/Resolved]
  - Urinary retention [Recovered/Resolved]
